FAERS Safety Report 12727999 (Version 2)
Quarter: 2017Q1

REPORT INFORMATION
  Report Type: Other
  Country: IT (occurrence: IT)
  Receive Date: 20160909
  Receipt Date: 20170106
  Transmission Date: 20170428
  Serious: Yes (Hospitalization)
  Sender: FDA-Public Use
  Company Number: IT-VALIDUS PHARMACEUTICALS LLC-IT-2016VAL002582

PATIENT
  Age: 39 Year
  Sex: Female

DRUGS (2)
  1. LASIX [Suspect]
     Active Substance: FUROSEMIDE
     Indication: HYPERTENSION
     Dosage: 20 MG, TOTAL
     Route: 048
     Dates: start: 20160527, end: 20160527
  2. STILNOX [Suspect]
     Active Substance: ZOLPIDEM TARTRATE
     Indication: AGITATION
     Dosage: 5 DF, TOTAL
     Route: 048
     Dates: start: 20160527, end: 20160527

REACTIONS (3)
  - Drug abuse [Recovering/Resolving]
  - Hallucination, visual [Recovering/Resolving]
  - Sopor [Recovering/Resolving]

NARRATIVE: CASE EVENT DATE: 20160527
